FAERS Safety Report 5740030-0 (Version None)
Quarter: 2008Q2

REPORT INFORMATION
  Report Type: 
  Country: None (occurrence: None)
  Receive Date: 20080513
  Receipt Date: 20080430
  Transmission Date: 20081010
  Serious: Yes (Death, Other)
  Sender: FDA-Public Use
  Company Number: 2006000539

PATIENT
  Age: 66 Year
  Sex: Female

DRUGS (4)
  1. ERLOTINIB(ERLOTINIB HCL)(TABLET) (ERLOTINIB HCL) [Suspect]
     Indication: NON-SMALL CELL LUNG CANCER
     Dosage: 150 MG (150 MG,QD), ORAL
     Route: 048
     Dates: start: 20051222, end: 20080414
  2. LANSOPRAZOLE [Concomitant]
  3. CATAFLAM [Concomitant]
  4. LEVOTHYROXINE SODIUM [Concomitant]

REACTIONS (2)
  - DACTYLITIS [None]
  - PALMAR-PLANTAR ERYTHRODYSAESTHESIA SYNDROME [None]
